FAERS Safety Report 20082802 (Version 1)
Quarter: 2021Q4

REPORT INFORMATION
  Report Type: Spontaneous
  Country: US (occurrence: None)
  Receive Date: 20211117
  Receipt Date: 20211117
  Transmission Date: 20220303
  Serious: Yes (Life-Threatening)
  Sender: FDA-Public Use
  Company Number: None

PATIENT
  Age: 7 Year
  Sex: Female
  Weight: 25 kg

DRUGS (9)
  1. ONCASPAR [Suspect]
     Active Substance: PEGASPARGASE
     Indication: Acute lymphocytic leukaemia
     Dosage: OTHER FREQUENCY : ONCE;?
     Route: 042
  2. Famotidne [Concomitant]
     Dates: start: 20211026, end: 20211026
  3. DIPHENHYDRAMINE [Concomitant]
     Active Substance: DIPHENHYDRAMINE
     Dates: start: 20211026, end: 20211026
  4. METHOTREXATE [Concomitant]
     Active Substance: METHOTREXATE
     Dates: start: 20211026, end: 20211026
  5. MIDAZOLAM [Concomitant]
     Active Substance: MIDAZOLAM
     Dates: start: 20211026, end: 20211026
  6. VINCRISTINE [Concomitant]
     Active Substance: VINCRISTINE
     Dates: start: 20211026, end: 20211026
  7. PROPOFOL [Concomitant]
     Active Substance: PROPOFOL
     Dates: start: 20211026, end: 20211026
  8. BACTRIM [Concomitant]
     Active Substance: SULFAMETHOXAZOLE\TRIMETHOPRIM
     Dates: start: 20210918
  9. MERCAPTOPURINE [Concomitant]
     Active Substance: MERCAPTOPURINE
     Dates: start: 20211011

REACTIONS (4)
  - Swelling face [None]
  - Erythema [None]
  - Vomiting [None]
  - Infusion related reaction [None]

NARRATIVE: CASE EVENT DATE: 20211026
